FAERS Safety Report 17805123 (Version 3)
Quarter: 2020Q2

REPORT INFORMATION
  Report Type: Spontaneous
  Country: US (occurrence: US)
  Receive Date: 20200519
  Receipt Date: 20200528
  Transmission Date: 20200714
  Serious: No
  Sender: FDA-Public Use
  Company Number: NVSC2020US137230

PATIENT

DRUGS (1)
  1. PATADAY [Suspect]
     Active Substance: OLOPATADINE HYDROCHLORIDE
     Indication: EYE ALLERGY
     Dosage: 2.5 ML ONCE DAILY
     Route: 065

REACTIONS (3)
  - Lacrimation increased [Unknown]
  - Eye pruritus [Unknown]
  - Drug ineffective [Unknown]

NARRATIVE: CASE EVENT DATE: 20200513
